FAERS Safety Report 8211326-8 (Version None)
Quarter: 2012Q1

REPORT INFORMATION
  Report Type: 
  Country: None (occurrence: None)
  Receive Date: 20120315
  Receipt Date: 20120315
  Transmission Date: 20120608
  Serious: Yes (Life-Threatening, Hospitalization)
  Sender: FDA-Public Use
  Company Number: None

PATIENT
  Age: 35 Year
  Sex: Female
  Weight: 84 kg

DRUGS (1)
  1. CERVIDIL [Suspect]
     Indication: LABOUR INDUCTION
     Dosage: 10 MG
     Route: 067
     Dates: start: 20120306, end: 20120306

REACTIONS (5)
  - HYSTERECTOMY [None]
  - DRUG EFFECT DECREASED [None]
  - MATERNAL EXPOSURE DURING PREGNANCY [None]
  - HYPOTENSION [None]
  - UTERINE RUPTURE [None]
